FAERS Safety Report 5833325-3 (Version None)
Quarter: 2008Q3

REPORT INFORMATION
  Report Type: 
  Country: None (occurrence: None)
  Receive Date: 20080804
  Receipt Date: 20080804
  Transmission Date: 20090109
  Serious: Yes (Life-Threatening, Hospitalization)
  Sender: FDA-Public Use
  Company Number: None

PATIENT
  Age: 17 Year
  Sex: Female
  Weight: 58.9676 kg

DRUGS (1)
  1. YAZ [Suspect]
     Indication: MENSTRUAL CYCLE MANAGEMENT
     Dosage: 1 DAILY ORALLY
     Route: 048
     Dates: start: 20070501, end: 20070801

REACTIONS (2)
  - MUSCULOSKELETAL CHEST PAIN [None]
  - PULMONARY THROMBOSIS [None]
